FAERS Safety Report 8070875-6 (Version None)
Quarter: 2012Q1

REPORT INFORMATION
  Report Type: 
  Country: None (occurrence: None)
  Receive Date: 20120125
  Receipt Date: 20120119
  Transmission Date: 20120608
  Serious: Yes (Hospitalization)
  Sender: FDA-Public Use
  Company Number: PHHO2011BE021386

PATIENT
  Sex: Male
  Weight: 102 kg

DRUGS (13)
  1. AMOXICILLIN [Concomitant]
  2. BLINDED NO TREATMENT RECEIVED [Suspect]
     Dosage: CODE NOT BROKEN
     Route: 048
     Dates: start: 20111217
  3. BLINDED ALISKIREN [Suspect]
     Dosage: CODE NOT BROKEN
     Route: 048
     Dates: start: 20111217
  4. ASPIRIN [Suspect]
     Indication: PROPHYLAXIS
     Dosage: 80 MG, QD
     Route: 048
     Dates: start: 20091207, end: 20111208
  5. TROPHEN [Concomitant]
  6. BISOPROLOL FUMARATE [Concomitant]
     Indication: HYPERTENSION
     Dosage: 2.5 MG, QD
     Route: 048
     Dates: start: 20091216
  7. BLINDED NO TREATMENT RECEIVED [Suspect]
     Indication: CORONARY ARTERY DISEASE
     Dosage: CODE NOT BROKEN
     Route: 048
     Dates: start: 20100104, end: 20111207
  8. CHLORAMPHENICOL [Concomitant]
  9. BLINDED PLACEBO [Suspect]
     Indication: CORONARY ARTERY DISEASE
     Dosage: CODE NOT BROKEN
     Route: 048
     Dates: start: 20100104, end: 20111207
  10. SIMVASTATIN [Concomitant]
     Indication: HYPERCHOLESTEROLAEMIA
     Dosage: 40 MG, QD
     Route: 048
     Dates: start: 20091203
  11. BLINDED ALISKIREN [Suspect]
     Indication: CORONARY ARTERY DISEASE
     Dosage: CODE NOT BROKEN
     Route: 048
     Dates: start: 20100104, end: 20111207
  12. BLINDED PLACEBO [Suspect]
     Dosage: CODE NOT BROKEN
     Route: 048
     Dates: start: 20111217
  13. ACETYLSALICYLIC ACID SRT [Suspect]

REACTIONS (2)
  - UPPER GASTROINTESTINAL HAEMORRHAGE [None]
  - CONCOMITANT DISEASE PROGRESSION [None]
